FAERS Safety Report 9898529 (Version 2)
Quarter: 2014Q1

REPORT INFORMATION
  Report Type: Spontaneous
  Country: US (occurrence: US)
  Receive Date: 20140214
  Receipt Date: 20140214
  Transmission Date: 20141002
  Serious: No
  Sender: FDA-Public Use
  Company Number: US-GILEAD-2011-0040949

PATIENT
  Sex: Female

DRUGS (4)
  1. LETAIRIS [Suspect]
     Indication: PULMONARY HYPERTENSION
     Route: 048
     Dates: start: 20110615
  2. LETAIRIS [Suspect]
     Indication: SARCOIDOSIS
  3. LETAIRIS [Suspect]
     Indication: ATRIAL SEPTAL DEFECT
  4. LETAIRIS [Suspect]
     Indication: HYPOXIA

REACTIONS (2)
  - Rash pruritic [Recovering/Resolving]
  - Oedema [Unknown]
